FAERS Safety Report 16839898 (Version 13)
Quarter: 2022Q3

REPORT INFORMATION
  Report Type: Spontaneous
  Country: US (occurrence: US)
  Receive Date: 20190923
  Receipt Date: 20220830
  Transmission Date: 20221027
  Serious: Yes (Hospitalization, Other)
  Sender: FDA-Public Use
  Company Number: US-AMGEN-USASP2019155193

PATIENT
  Age: 66 Year
  Sex: Female
  Weight: 88.435 kg

DRUGS (27)
  1. ENBREL [Suspect]
     Active Substance: ETANERCEPT
     Indication: Rheumatoid arthritis
     Dosage: 25 MG, 2X/WEEK
     Route: 058
     Dates: start: 2008
  2. ENBREL [Suspect]
     Active Substance: ETANERCEPT
     Indication: Rheumatoid arthritis
     Dosage: UNK
     Route: 065
  3. METHOTREXATE SODIUM [Suspect]
     Active Substance: METHOTREXATE SODIUM
     Indication: Rheumatoid arthritis
     Dosage: UNK, WEEKLY
     Route: 058
     Dates: start: 2007
  4. PLAQUENIL [Concomitant]
     Active Substance: HYDROXYCHLOROQUINE SULFATE
     Dosage: 200 MG, 2X/DAY
     Dates: start: 2008
  5. TRAMADOL [Concomitant]
     Active Substance: TRAMADOL
     Dosage: 50 MG, THREE TIMES TO FOUR TIMES DAILY
     Dates: start: 2007
  6. FOLIC ACID [Concomitant]
     Active Substance: FOLIC ACID
     Dosage: 1 MG, 2X/DAY
     Dates: start: 2008
  7. CHOLECALCIFEROL [Concomitant]
     Active Substance: CHOLECALCIFEROL
     Dosage: 400 IU, 2X/DAY
     Dates: start: 2007
  8. CHOLECALCIFEROL [Concomitant]
     Active Substance: CHOLECALCIFEROL
     Dosage: 2000 IU, 1X/DAY
  9. CALCIUM [Concomitant]
     Active Substance: CALCIUM
     Dosage: 1600 MG, 1X/DAY
     Dates: start: 2007
  10. ELIQUIS [Concomitant]
     Active Substance: APIXABAN
     Dosage: 2.5 MG
  11. EVENITY [Concomitant]
     Active Substance: ROMOSOZUMAB-AQQG
     Dosage: UNK (SHOTS EVERY MONTH)
  12. VALSARTAN [Concomitant]
     Active Substance: VALSARTAN
     Dosage: 320 MG, 1X/DAY
  13. HYDROCHLOROTHIAZIDE [Concomitant]
     Active Substance: HYDROCHLOROTHIAZIDE
     Dosage: 12.5 IU, 1X/DAY
  14. PEPCID AC [Concomitant]
     Active Substance: FAMOTIDINE
     Dosage: 40 MG, 2X/DAY
  15. ADDERALL [Concomitant]
     Active Substance: AMPHETAMINE ASPARTATE\AMPHETAMINE SULFATE\DEXTROAMPHETAMINE SACCHARATE\DEXTROAMPHETAMINE SULFATE
     Dosage: 20 MG, AS NEEDED (2 TIMES TO 3 TIMES A DAY)
  16. TOPROL XL [Concomitant]
     Active Substance: METOPROLOL SUCCINATE
     Dosage: 100 MG, 1X/DAY
  17. GABAPENTIN [Concomitant]
     Active Substance: GABAPENTIN
     Dosage: 600 MG, AS NEEDED (600MG TWICE A DAY, OR 3 OR 4 TIMES A DAY)
  18. METHENAMINE HIPPURATE [Concomitant]
     Active Substance: METHENAMINE HIPPURATE
     Dosage: 1 G, 2X/DAY
  19. D-MANNOSE [Concomitant]
     Dosage: 2000 MG, DAILY (2,000MG EVERY MORNING)
  20. PROBIOTICS NOS [Concomitant]
     Active Substance: PROBIOTICS NOS
     Dosage: UNK UNK, DAILY (50 BILLION OR, WHATEVER, EVERY MORNING)
  21. ASPIRIN [Concomitant]
     Active Substance: ASPIRIN
     Dosage: 81 MG, DAILY (81MG EVERY MORNING)
  22. CYMBALTA [Concomitant]
     Active Substance: DULOXETINE HYDROCHLORIDE
     Dosage: 60 MG, 2X/DAY
  23. ALPHAGAN P [Concomitant]
     Active Substance: BRIMONIDINE TARTRATE
     Indication: Glaucoma
     Dosage: UNK UNK, 2X/DAY (0.1 OR 0.2, EYE DROPS, IN RIGHT EYE, TWICE A DAY)
     Route: 047
  24. RESTASIS [Concomitant]
     Active Substance: CYCLOSPORINE
     Indication: Sjogren^s syndrome
     Dosage: 0.5 %, 2X/DAY (0.5% IN BOTH EYES, TWICE A DAY)
     Route: 047
  25. MINOXIDIL [Concomitant]
     Active Substance: MINOXIDIL
     Indication: Alopecia
     Dosage: UNK (0.51% SOLUTION DROPS TO SCALP)
     Route: 061
  26. ARAVA [Concomitant]
     Active Substance: LEFLUNOMIDE
     Indication: Rheumatoid arthritis
     Dosage: 20 MG, DAILY (20MG AT NIGHT)
  27. ESTRADIOL [Concomitant]
     Active Substance: ESTRADIOL
     Dosage: UNK UNK, CYCLIC (EVERY 72 HOURS. 1GM TO VAGINA)
     Route: 067

REACTIONS (13)
  - Illness [Unknown]
  - Post procedural complication [Unknown]
  - Pelvic floor repair [Unknown]
  - Osteoporosis [Unknown]
  - Fracture [Unknown]
  - Haemorrhage [Unknown]
  - Venous injury [Unknown]
  - Ureteric injury [Unknown]
  - Thrombosis [Unknown]
  - Pulmonary haemorrhage [Unknown]
  - Blood cholesterol abnormal [Unknown]
  - Post procedural infection [Recovered/Resolved]
  - Drug ineffective [Unknown]
